FAERS Safety Report 19300674 (Version 1)
Quarter: 2021Q2

REPORT INFORMATION
  Report Type: Other
  Country: IN (occurrence: IN)
  Receive Date: 20210524
  Receipt Date: 20210524
  Transmission Date: 20210717
  Serious: Yes (Death, Hospitalization)
  Sender: FDA-Public Use
  Company Number: IN-GENUS_LIFESCIENCES-USA-POI0580202100113

PATIENT
  Age: 10 Day
  Sex: Female

DRUGS (1)
  1. HYDROCODONE BITARTRATE AND ACETAMINOPHEN ORAL SOLUTION [Suspect]
     Active Substance: ACETAMINOPHEN\HYDROCODONE BITARTRATE
     Indication: PAIN
     Dates: start: 2020, end: 2020

REACTIONS (1)
  - Neonatal intestinal perforation [Fatal]

NARRATIVE: CASE EVENT DATE: 2020
